FAERS Safety Report 20469264 (Version 1)
Quarter: 2022Q1

REPORT INFORMATION
  Report Type: Spontaneous
  Country: US (occurrence: None)
  Receive Date: 20220212
  Receipt Date: 20220212
  Transmission Date: 20220423
  Serious: Yes (unspecified)
  Sender: FDA-Public Use
  Company Number: None

PATIENT
  Age: 48 Year
  Sex: Female
  Weight: 62.1 kg

DRUGS (1)
  1. TRAZODONE [Suspect]
     Active Substance: TRAZODONE HYDROCHLORIDE
     Indication: Insomnia
     Dosage: OTHER QUANTITY : 1 TABLET(S);?FREQUENCY : AT BEDTIME;?
     Route: 048

REACTIONS (8)
  - Illness [None]
  - Abdominal pain upper [None]
  - Diarrhoea [None]
  - Diarrhoea [None]
  - Haemorrhage [None]
  - Weight decreased [None]
  - Feeding disorder [None]
  - Fluid intake reduced [None]

NARRATIVE: CASE EVENT DATE: 20220201
